FAERS Safety Report 6661293-3 (Version None)
Quarter: 2010Q1

REPORT INFORMATION
  Report Type: 
  Country: None (occurrence: None)
  Receive Date: 20100329
  Receipt Date: 20100312
  Transmission Date: 20100710
  Serious: Yes (Death)
  Sender: FDA-Public Use
  Company Number: IPC201003-000060

PATIENT
  Age: 63 Year
  Sex: Male

DRUGS (3)
  1. ATENOLOL [Suspect]
     Dosage: ORAL
     Route: 048
  2. ACETAMINOPHEN [Suspect]
     Dosage: ORAL
     Route: 048
  3. ETHANOL [Suspect]
     Dosage: ORAL
     Route: 048

REACTIONS (1)
  - COMPLETED SUICIDE [None]
